FAERS Safety Report 25767968 (Version 1)
Quarter: 2025Q3

REPORT INFORMATION
  Report Type: Spontaneous
  Country: US (occurrence: US)
  Receive Date: 20250905
  Receipt Date: 20250905
  Transmission Date: 20251020
  Serious: No
  Sender: DOMPE FARMACEUTICI
  Company Number: US-FARMAPROD-202505-1679

PATIENT
  Sex: Female

DRUGS (18)
  1. OXERVATE [Suspect]
     Active Substance: CENEGERMIN-BKBJ
     Indication: Neurotrophic keratopathy
     Route: 047
     Dates: start: 20250513
  2. ASTEPRO [Concomitant]
     Active Substance: AZELASTINE HYDROCHLORIDE
  3. MUPIROCIN [Concomitant]
     Active Substance: MUPIROCIN
  4. AIRBORNE [Concomitant]
     Active Substance: HERBALS\MINERALS\VITAMINS
  5. ZYRTEC [Concomitant]
     Active Substance: CETIRIZINE HYDROCHLORIDE
  6. ARTIFICIAL TEARS [Concomitant]
  7. OCUVITE EYE HEALTH [Concomitant]
  8. ALIGN [Concomitant]
     Active Substance: BIFIDOBACTERIUM LONGUM SUBSP. INFANTIS
  9. SYSTANE (HYPROMELLOSE 2910 (4000 MPA.S)) [Concomitant]
     Active Substance: HYPROMELLOSE 2910 (4000 MPA.S)
  10. ASPIRIN [Concomitant]
     Active Substance: ASPIRIN
  11. TRELEGY ELLIPTA [Concomitant]
     Active Substance: FLUTICASONE FUROATE\UMECLIDINIUM BROMIDE\VILANTEROL TRIFENATATE
  12. CALTRATE 600+D3 PLUS MINERALS [BORON;CALCIUM;COLECALCIFEROL;COPPER;MAG [Concomitant]
  13. AMLODIPINE BESYLATE [Concomitant]
     Active Substance: AMLODIPINE BESYLATE
  14. CARVEDILOL [Concomitant]
     Active Substance: CARVEDILOL
  15. ATORVASTATIN  CALCIUM [Concomitant]
  16. LEVOTHYROXINE SODIUM [Concomitant]
     Active Substance: LEVOTHYROXINE SODIUM
  17. LEVOTHYROXINE SODIUM [Concomitant]
     Active Substance: LEVOTHYROXINE SODIUM
  18. VALSARTAN [Concomitant]
     Active Substance: VALSARTAN

REACTIONS (2)
  - Arthritis [Unknown]
  - Periorbital pain [Unknown]
